FAERS Safety Report 6201350-9 (Version None)
Quarter: 2009Q2

REPORT INFORMATION
  Report Type: 
  Country: None (occurrence: None)
  Receive Date: 20090526
  Receipt Date: 20090518
  Transmission Date: 20091009
  Serious: Yes (Other)
  Sender: FDA-Public Use
  Company Number: PHEH2009US04967

PATIENT
  Sex: Male
  Weight: 131.97 kg

DRUGS (2)
  1. ZOMETA [Suspect]
     Indication: MULTIPLE MYELOMA
     Dosage: 4 MG, QMO
     Route: 042
     Dates: start: 20021201, end: 20080815
  2. ZOMETA [Suspect]
     Indication: BONE DISORDER

REACTIONS (3)
  - HAEMORRHAGE [None]
  - OSTEONECROSIS [None]
  - TOOTH EXTRACTION [None]
